FAERS Safety Report 5835796-5 (Version None)
Quarter: 2008Q3

REPORT INFORMATION
  Report Type: 
  Country: None (occurrence: None)
  Receive Date: 20080806
  Receipt Date: 20080731
  Transmission Date: 20090109
  Serious: Yes (Hospitalization)
  Sender: FDA-Public Use
  Company Number: GB-BOEHRINGER INGELHEIM GMBH, GERMANY-2008-BP-12009RO

PATIENT
  Age: 53 Year
  Sex: Female

DRUGS (13)
  1. FLECAINIDE ACETATE [Suspect]
     Indication: ATRIAL FIBRILLATION
     Route: 048
  2. FLECAINIDE ACETATE [Suspect]
  3. RAMIPRIL [Suspect]
  4. GLICLAZIDE [Suspect]
  5. DILTIAZEM HCL [Suspect]
  6. METOPROLOL SUCCINATE [Suspect]
  7. CLOPIDOGREL [Suspect]
  8. ATORVASTATIN [Suspect]
  9. RIFAMPICIN [Concomitant]
     Indication: PERITONEAL TUBERCULOSIS
  10. ISONIAZID [Concomitant]
     Indication: PERITONEAL TUBERCULOSIS
  11. PYRAZINAMIDE [Concomitant]
     Indication: PERITONEAL TUBERCULOSIS
  12. PYRIDOXINE HYDROCHLORIDE [Concomitant]
     Indication: PERITONEAL TUBERCULOSIS
  13. ETHAMBUTOL HCL [Concomitant]
     Indication: PERITONEAL TUBERCULOSIS

REACTIONS (6)
  - ATRIAL FIBRILLATION [None]
  - DELUSIONAL DISORDER, PERSECUTORY TYPE [None]
  - DRUG TOXICITY [None]
  - METABOLIC ENCEPHALOPATHY [None]
  - MYOCLONUS [None]
  - PERITONEAL TUBERCULOSIS [None]
